FAERS Safety Report 6982271-0 (Version None)
Quarter: 2010Q3

REPORT INFORMATION
  Report Type: 
  Country: None (occurrence: None)
  Receive Date: 20100914
  Receipt Date: 20091209
  Transmission Date: 20110219
  Serious: No
  Sender: FDA-Public Use
  Company Number: US-PFIZER INC-2009308965

PATIENT
  Sex: Female
  Weight: 61 kg

DRUGS (2)
  1. LYRICA [Suspect]
     Indication: OSTEOARTHRITIS
     Dosage: 50 MG, 2X/DAY
     Dates: start: 20091101
  2. WARFARIN [Concomitant]
     Dosage: UNK
     Dates: start: 20090801

REACTIONS (3)
  - DIZZINESS [None]
  - STRABISMUS [None]
  - VISION BLURRED [None]
